FAERS Safety Report 15164540 (Version 2)
Quarter: 2018Q3

REPORT INFORMATION
  Report Type: Spontaneous
  Country: US (occurrence: US)
  Receive Date: 20180719
  Receipt Date: 20180827
  Transmission Date: 20181010
  Serious: Yes (Other)
  Sender: FDA-Public Use
  Company Number: US-BAYER-2017-219613

PATIENT
  Age: 36 Year
  Sex: Female

DRUGS (1)
  1. MIRENA [Suspect]
     Active Substance: LEVONORGESTREL
     Dosage: 20 MCG/24HR, CONT
     Route: 015
     Dates: start: 20091223, end: 20121129

REACTIONS (5)
  - Device dislocation [Unknown]
  - Device ineffective [Unknown]
  - Embedded device [Unknown]
  - Pregnancy with contraceptive device [Unknown]
  - Pelvic pain [Unknown]

NARRATIVE: CASE EVENT DATE: 20130219
